FAERS Safety Report 4917175-8 (Version None)
Quarter: 2006Q1

REPORT INFORMATION
  Report Type: 
  Country: None (occurrence: None)
  Receive Date: 20060221
  Receipt Date: 20051122
  Transmission Date: 20060701
  Serious: Yes (Hospitalization, Other)
  Sender: FDA-Public Use
  Company Number: AU-AVENTIS-200520393GDDC

PATIENT
  Age: 61 Year
  Sex: Female

DRUGS (5)
  1. ARAVA [Suspect]
     Indication: RHEUMATOID ARTHRITIS
     Route: 048
     Dates: start: 20050401, end: 20050707
  2. METHOTREXATE [Suspect]
     Indication: RHEUMATOID ARTHRITIS
     Route: 048
     Dates: start: 20050501, end: 20050707
  3. PREDNISOLONE [Concomitant]
     Indication: RHEUMATOID ARTHRITIS
     Route: 048
  4. TEMAZEPAM [Concomitant]
     Dosage: DOSE: UNK
  5. FOLATE [Concomitant]
     Route: 048
     Dates: start: 20050501

REACTIONS (9)
  - DYSPNOEA [None]
  - HEPATIC ENCEPHALOPATHY [None]
  - ISCHAEMIC HEPATITIS [None]
  - MENTAL DISORDER [None]
  - PLEURAL EFFUSION [None]
  - PNEUMONIA [None]
  - POLYNEUROPATHY [None]
  - RESPIRATORY FAILURE [None]
  - SPUTUM PURULENT [None]
